FAERS Safety Report 24157718 (Version 3)
Quarter: 2024Q3

REPORT INFORMATION
  Report Type: Report from Study
  Country: CN (occurrence: CN)
  Receive Date: 20240731
  Receipt Date: 20240813
  Transmission Date: 20241016
  Serious: Yes (Hospitalization)
  Sender: DAIICHI
  Company Number: CN-DSJP-DSJ-2024-137610

PATIENT
  Sex: Female
  Weight: 38.6 kg

DRUGS (25)
  1. ENHERTU [Suspect]
     Active Substance: FAM-TRASTUZUMAB DERUXTECAN-NXKI
     Indication: Breast cancer
     Dosage: 5.4 MG/KG, ONCE EVERY 3 WK
     Route: 041
     Dates: start: 20240718, end: 20240718
  2. FENTANYL CITRATE [Concomitant]
     Active Substance: FENTANYL CITRATE
     Indication: Inflammation
     Dosage: 4.2 MG, OTHER,1/72 HOUR
     Route: 050
     Dates: start: 20240715
  3. CELECOXIB [Concomitant]
     Active Substance: CELECOXIB
     Indication: Inflammation
     Dosage: 0.2 G, QD
     Route: 048
     Dates: start: 20240715
  4. MANNITOL [Concomitant]
     Active Substance: MANNITOL
     Indication: Dehydration
     Dosage: 250 ML, QD
     Route: 042
     Dates: start: 20240715, end: 20240715
  5. DEXAMETHASONE [Concomitant]
     Active Substance: DEXAMETHASONE
     Indication: Antiinflammatory therapy
     Dosage: 5 MG, QD (NEEDLE)
     Route: 042
     Dates: start: 20240715, end: 20240722
  6. DEXAMETHASONE [Concomitant]
     Active Substance: DEXAMETHASONE
     Indication: Surgical preconditioning
  7. ESOMEPRAZOLE SODIUM [Concomitant]
     Active Substance: ESOMEPRAZOLE SODIUM
     Indication: Prophylaxis
     Dosage: 40 MG, QD (NEEDLE)
     Route: 042
     Dates: start: 20220715, end: 20220722
  8. ESOMEPRAZOLE SODIUM [Concomitant]
     Active Substance: ESOMEPRAZOLE SODIUM
     Indication: Gastrointestinal disorder prophylaxis
  9. GLUTATHIONE [Concomitant]
     Active Substance: GLUTATHIONE
     Indication: Alanine aminotransferase increased
     Dosage: 1.2 G, QD (NEEDLE)
     Route: 042
     Dates: start: 20240715, end: 20240727
  10. GLUTATHIONE [Concomitant]
     Active Substance: GLUTATHIONE
     Indication: Aspartate aminotransferase increased
  11. VITAMINS [Concomitant]
     Active Substance: VITAMINS
     Indication: Vitamin supplementation
     Dosage: 5 ML, QD
     Route: 042
     Dates: start: 20240715, end: 20240727
  12. IBANDRONATE MONOSODIUM MONOHYDRATE [Concomitant]
     Indication: Prophylaxis
     Dosage: 4 MG, SINGLE (NEEDLE)
     Route: 042
     Dates: start: 20240717, end: 20240717
  13. CALCITRIOL [Concomitant]
     Active Substance: CALCITRIOL
     Indication: Mineral supplementation
     Dosage: 0.25 UG, QD
     Route: 048
     Dates: start: 20240717
  14. CALCIUM CARBONATE [Concomitant]
     Active Substance: CALCIUM CARBONATE
     Indication: Mineral supplementation
     Dosage: 50 MG, TID
     Route: 048
     Dates: start: 20240717
  15. DIPHENHYDRAMINE [Concomitant]
     Active Substance: DIPHENHYDRAMINE
     Indication: Prophylaxis
     Dosage: 20 MG, SINGLE
     Route: 030
     Dates: start: 20240718, end: 20240718
  16. NETUPITANT\PALONOSETRON [Concomitant]
     Active Substance: NETUPITANT\PALONOSETRON
     Indication: Prophylaxis
     Dosage: 1 DF, SINGLE
     Route: 048
     Dates: start: 20240718, end: 20240718
  17. NETUPITANT\PALONOSETRON [Concomitant]
     Active Substance: NETUPITANT\PALONOSETRON
     Indication: Prophylaxis of nausea and vomiting
  18. AMINOPHYLLINE\CHLORPHENIRAMINE MALEATE\METHOXYPHENAMINE HYDROCHLORIDE\ [Concomitant]
     Active Substance: AMINOPHYLLINE\CHLORPHENIRAMINE MALEATE\METHOXYPHENAMINE HYDROCHLORIDE\NOSCAPINE
     Indication: Cough
     Dosage: 2 DF, TID
     Route: 048
     Dates: start: 20240722
  19. ESTAZOLAM [Concomitant]
     Active Substance: ESTAZOLAM
     Indication: Insomnia
     Dosage: 1 MG, QD
     Route: 048
     Dates: start: 20240723
  20. MEGESTROL [Concomitant]
     Active Substance: MEGESTROL
     Indication: Decreased appetite
     Dosage: 160 MG, QD
     Route: 048
     Dates: start: 20240724
  21. ONDANSETRON [Concomitant]
     Active Substance: ONDANSETRON
     Indication: Nausea
     Dosage: 8 MG, BID
     Route: 048
     Dates: start: 20240724
  22. ONDANSETRON [Concomitant]
     Active Substance: ONDANSETRON
     Indication: Vomiting
  23. SODIUM CHLORIDE [Concomitant]
     Active Substance: SODIUM CHLORIDE
     Indication: Hyponatraemia
     Dosage: 20 ML, SINGLE
     Route: 042
     Dates: start: 20240725, end: 20240725
  24. SODIUM CHLORIDE [Concomitant]
     Active Substance: SODIUM CHLORIDE
     Indication: Hypochloraemia
  25. INTACTED PROTEIN ENTERAL NUTRITION [Concomitant]
     Indication: Nutritional supplementation
     Dosage: 40 G, TID (POWDER)
     Route: 048
     Dates: start: 20240722

REACTIONS (4)
  - Alanine aminotransferase increased [Recovered/Resolved]
  - Aspartate aminotransferase increased [Not Recovered/Not Resolved]
  - Hypoalbuminaemia [Not Recovered/Not Resolved]
  - Hypocalcaemia [Not Recovered/Not Resolved]

NARRATIVE: CASE EVENT DATE: 20240725
